FAERS Safety Report 8445281-2 (Version None)
Quarter: 2012Q2

REPORT INFORMATION
  Report Type: 
  Country: None (occurrence: None)
  Receive Date: 20120612
  Receipt Date: 20120612
  Transmission Date: 20120825
  Serious: Yes (Other)
  Sender: FDA-Public Use
  Company Number: None

PATIENT
  Age: 42 Year
  Sex: Female

DRUGS (7)
  1. LYRICA [Concomitant]
  2. TYMOZAPAN 15MG [Concomitant]
  3. LISINOPRIL [Concomitant]
  4. CYMBALTA [Suspect]
     Indication: DEPRESSION
     Dosage: 60MG ONCE A DAY PO
     Route: 048
  5. CAPOXBENE [Concomitant]
  6. PRILOSEC [Concomitant]
  7. ABILITY 2MG [Concomitant]

REACTIONS (6)
  - POLLAKIURIA [None]
  - SOMNOLENCE [None]
  - LIBIDO DECREASED [None]
  - DECREASED APPETITE [None]
  - DRY MOUTH [None]
  - LIP SWELLING [None]
